FAERS Safety Report 7484510-9 (Version None)
Quarter: 2011Q2

REPORT INFORMATION
  Report Type: 
  Country: None (occurrence: None)
  Receive Date: 20110517
  Receipt Date: 20110509
  Transmission Date: 20111010
  Serious: No
  Sender: FDA-Public Use
  Company Number: US-BIOGENIDEC-2010BI039154

PATIENT
  Age: 34 Year
  Sex: Male

DRUGS (4)
  1. REBIF [Concomitant]
  2. TYSABRI [Suspect]
     Indication: MULTIPLE SCLEROSIS
     Route: 042
     Dates: start: 20100809
  3. SLEEPING MEDICATION (NOS) [Concomitant]
     Indication: INSOMNIA
  4. MEDICATION (NOS) [Concomitant]
     Indication: DEPRESSION
     Dates: start: 20090101

REACTIONS (7)
  - DIARRHOEA [None]
  - GENERAL SYMPTOM [None]
  - CONSTIPATION [None]
  - DRUG EFFECT DECREASED [None]
  - PRURITUS [None]
  - MEMORY IMPAIRMENT [None]
  - MULTIPLE SCLEROSIS RELAPSE [None]
